FAERS Safety Report 24422185 (Version 1)
Quarter: 2024Q4

REPORT INFORMATION
  Report Type: Spontaneous
  Country: US (occurrence: US)
  Receive Date: 20241010
  Receipt Date: 20241010
  Transmission Date: 20250115
  Serious: Yes (Hospitalization)
  Sender: BOEHRINGER INGELHEIM
  Company Number: US-Komodo Health-a23aa000003WSCLAA4

PATIENT
  Age: 75 Year
  Sex: Female

DRUGS (2)
  1. JARDIANCE [Suspect]
     Active Substance: EMPAGLIFLOZIN
     Indication: Diabetes mellitus
     Dates: start: 2023
  2. JARDIANCE [Suspect]
     Active Substance: EMPAGLIFLOZIN

REACTIONS (10)
  - Aortic aneurysm [Unknown]
  - Fungal infection [Recovered/Resolved]
  - Gait inability [Unknown]
  - Hypoaesthesia [Recovered/Resolved]
  - Pain in extremity [Unknown]
  - Rash [Unknown]
  - Scab [Unknown]
  - Insomnia [Unknown]
  - Rash pruritic [Unknown]
  - Scratch [Unknown]

NARRATIVE: CASE EVENT DATE: 20240601
